FAERS Safety Report 8958536 (Version 1)
Quarter: 2012Q4

REPORT INFORMATION
  Report Type: Spontaneous
  Country: US (occurrence: None)
  Receive Date: 20121205
  Receipt Date: 20121205
  Transmission Date: 20130627
  Serious: No
  Sender: FDA-Public Use
  Company Number: None

PATIENT
  Age: 74 Year
  Sex: Female
  Weight: 58.97 kg

DRUGS (1)
  1. SMZ/TMP DS 800-160 TAB (GENERIC) [Suspect]
     Indication: BLADDER INFECTION
     Dates: start: 20120706

REACTIONS (2)
  - Bone pain [None]
  - Arthralgia [None]
